FAERS Safety Report 8011469-8 (Version None)
Quarter: 2011Q4

REPORT INFORMATION
  Report Type: 
  Country: None (occurrence: None)
  Receive Date: 20111228
  Receipt Date: 20111220
  Transmission Date: 20120403
  Serious: No
  Sender: FDA-Public Use
  Company Number: US-PFIZER INC-2011309122

PATIENT
  Sex: Male
  Weight: 170 kg

DRUGS (9)
  1. LYRICA [Suspect]
     Indication: FIBROMYALGIA
     Dosage: 75 MG, 2X/DAY
     Route: 048
     Dates: start: 20111201
  2. ALPRAZOLAM [Concomitant]
     Indication: ANXIETY
     Dosage: 25 MG, 3X/DAY
  3. CYMBALTA [Concomitant]
     Indication: MYALGIA
     Dosage: UNK
  4. NASONEX [Concomitant]
     Indication: ALLERGIC SINUSITIS
     Dosage: UNK
  5. TRAMADOL [Concomitant]
     Indication: MYALGIA
     Dosage: 60 MG, AS NEEDED
  6. PROVENTIL [Concomitant]
     Indication: ASTHMA
     Dosage: UNK
  7. ALPRAZOLAM [Concomitant]
     Indication: TREMOR
  8. LYRICA [Suspect]
     Indication: MYALGIA
  9. PROMETHAZINE [Concomitant]
     Indication: NAUSEA
     Dosage: 12.5 MG, 2X/DAY

REACTIONS (1)
  - PAIN [None]
